FAERS Safety Report 14548073 (Version 4)
Quarter: 2018Q3

REPORT INFORMATION
  Report Type: Report from Study
  Country: AU (occurrence: AU)
  Receive Date: 20180219
  Receipt Date: 20180909
  Transmission Date: 20181010
  Serious: Yes (Hospitalization, Other)
  Sender: FDA-Public Use
  Company Number: PHHY2018AU027401

PATIENT
  Age: 58 Year
  Sex: Female

DRUGS (1)
  1. COSENTYX [Suspect]
     Active Substance: SECUKINUMAB
     Indication: PSORIATIC ARTHROPATHY
     Dosage: 300 MG, QMO
     Route: 058
     Dates: start: 20170508

REACTIONS (4)
  - Lower respiratory tract infection [Not Recovered/Not Resolved]
  - Appendicitis [Unknown]
  - Epiploic appendagitis [Unknown]
  - Kidney infection [Unknown]

NARRATIVE: CASE EVENT DATE: 20180213
